FAERS Safety Report 8745732 (Version 3)
Quarter: 2012Q4

REPORT INFORMATION
  Report Type: 
  Country: AU (occurrence: AU)
  Receive Date: 20120827
  Receipt Date: 20121002
  Transmission Date: 20130627
  Serious: Yes (Hospitalization, Other)
  Sender: FDA-Public Use
  Company Number: AU-BIOGENIDEC-2012BI032273

PATIENT
  Age: 48 Year
  Sex: Female

DRUGS (7)
  1. TYSABRI [Suspect]
     Indication: MULTIPLE SCLEROSIS
     Route: 042
     Dates: start: 2010
  2. LAMOTRIGINE [Concomitant]
     Indication: DEPRESSION
  3. MIRTAZAPINE [Concomitant]
     Indication: DEPRESSION
  4. CITALOPRAM [Concomitant]
     Indication: DEPRESSION
  5. SAME (S-ADENOSYL METHIONINE) [Concomitant]
     Indication: DEPRESSION
  6. BACLOFEN [Concomitant]
     Indication: MUSCLE SPASMS
  7. VITAMIN D SUPPLEMENT [Concomitant]

REACTIONS (2)
  - Progressive multifocal leukoencephalopathy [Not Recovered/Not Resolved]
  - Immune reconstitution inflammatory syndrome [Not Recovered/Not Resolved]
